FAERS Safety Report 25045219 (Version 1)
Quarter: 2025Q1

REPORT INFORMATION
  Report Type: Spontaneous
  Country: CA (occurrence: CA)
  Receive Date: 20250306
  Receipt Date: 20250306
  Transmission Date: 20250409
  Serious: Yes (Other)
  Sender: NOVARTIS
  Company Number: CA-002147023-NVSC2025CA037098

PATIENT
  Age: 8 Decade
  Sex: Female

DRUGS (7)
  1. CYCLOSPORINE [Suspect]
     Active Substance: CYCLOSPORINE
     Indication: Chronic spontaneous urticaria
     Dosage: 100 MG, BID, (EQUIVALENT TO 2.7 MG KG?1 DAY?1 FOR A 75 KG PATIENT)
     Route: 048
  2. CYCLOSPORINE [Suspect]
     Active Substance: CYCLOSPORINE
     Dosage: 50 MG, BID (1.3 MG KG?1 DAY?1 FOR A UAS7 OF { 8) FOR A TOTAL OF 15 MONTHS
     Route: 065
  3. BILASTINE [Suspect]
     Active Substance: BILASTINE
     Indication: Chronic spontaneous urticaria
     Route: 065
  4. RUPATADINE [Suspect]
     Active Substance: RUPATADINE
     Indication: Chronic spontaneous urticaria
     Route: 065
  5. CETIRIZINE [Suspect]
     Active Substance: CETIRIZINE HYDROCHLORIDE
     Indication: Chronic spontaneous urticaria
     Route: 065
  6. OMALIZUMAB [Concomitant]
     Active Substance: OMALIZUMAB
     Indication: Chronic spontaneous urticaria
     Route: 058
  7. OMALIZUMAB [Concomitant]
     Active Substance: OMALIZUMAB
     Route: 065

REACTIONS (3)
  - Renal impairment [Unknown]
  - Chronic spontaneous urticaria [Unknown]
  - Drug ineffective for unapproved indication [Unknown]
